FAERS Safety Report 4445729-4 (Version None)
Quarter: 2004Q3

REPORT INFORMATION
  Report Type: 
  Country: None (occurrence: None)
  Receive Date: 20040910
  Receipt Date: 20040831
  Transmission Date: 20050211
  Serious: Yes (Other)
  Sender: FDA-Public Use
  Company Number: US-JNJFOC-20040502040

PATIENT
  Sex: Male

DRUGS (1)
  1. CONCERTA [Suspect]
     Route: 049
     Dates: start: 20031001, end: 20031001

REACTIONS (3)
  - AGGRESSION [None]
  - CONDITION AGGRAVATED [None]
  - WEIGHT DECREASED [None]
